FAERS Safety Report 10266346 (Version 1)
Quarter: 2014Q2

REPORT INFORMATION
  Report Type: Spontaneous
  Country: US (occurrence: None)
  Receive Date: 20140625
  Receipt Date: 20140625
  Transmission Date: 20141212
  Serious: Yes (Life-Threatening, Hospitalization)
  Sender: FDA-Public Use
  Company Number: None

PATIENT
  Age: 35 Year
  Sex: Female
  Weight: 102.06 kg

DRUGS (4)
  1. HYDROCHLOROTHIAZIDE\LISINOPRIL [Suspect]
     Indication: BLOOD PRESSURE
     Dosage: 10MG/12.5MG  30 TABLETS  TWICE DAILY  BY MOUTH
     Route: 048
     Dates: start: 201401, end: 20140611
  2. AMLODIPINE 5MG TABLETS [Concomitant]
  3. METOPROLO 50MG [Concomitant]
  4. ELAVIL 25MG [Concomitant]

REACTIONS (4)
  - Lip swelling [None]
  - Swollen tongue [None]
  - Pharyngeal oedema [None]
  - Sedation [None]
